FAERS Safety Report 13666399 (Version 1)
Quarter: 2017Q2

REPORT INFORMATION
  Report Type: Spontaneous
  Country: US (occurrence: US)
  Receive Date: 20170619
  Receipt Date: 20170619
  Transmission Date: 20170830
  Serious: No
  Sender: FDA-Public Use
  Company Number: US-ROCHE-1301111

PATIENT
  Sex: Female

DRUGS (6)
  1. XELODA [Suspect]
     Active Substance: CAPECITABINE
     Dosage: 2000 MG, AM AND 1500 MG, PM.
     Route: 048
  2. XELODA [Suspect]
     Active Substance: CAPECITABINE
     Dosage: 4 IN AM, 3 IN PM, 14 DAYS ON, 7 DAYS OFF
     Route: 048
     Dates: start: 20130921
  3. TYLENOL [Concomitant]
     Active Substance: ACETAMINOPHEN
  4. OXYCODONE [Concomitant]
     Active Substance: OXYCODONE
  5. XELODA [Suspect]
     Active Substance: CAPECITABINE
     Indication: BREAST CANCER
     Route: 048
  6. KEPPRA [Concomitant]
     Active Substance: LEVETIRACETAM

REACTIONS (3)
  - Palmar-plantar erythrodysaesthesia syndrome [Not Recovered/Not Resolved]
  - Headache [Unknown]
  - Insomnia [Unknown]
